FAERS Safety Report 8121345-8 (Version None)
Quarter: 2012Q1

REPORT INFORMATION
  Report Type: 
  Country: None (occurrence: None)
  Receive Date: 20120206
  Receipt Date: 20120127
  Transmission Date: 20120608
  Serious: Yes (Disabling, Other)
  Sender: FDA-Public Use
  Company Number: AUR-APL-2012-00732

PATIENT
  Age: 48 Year
  Sex: Female
  Weight: 90 kg

DRUGS (21)
  1. ATENOLOL [Suspect]
     Indication: PRODUCT USED FOR UNKNOWN INDICATION
     Dosage: (25 MG, 1 D), ORAL
     Route: 048
  2. METHOCARBAMOL [Suspect]
     Indication: NEUROPATHY PERIPHERAL
     Dosage: (750 MG, AS REQUIRED), ORAL
     Route: 048
  3. METHOCARBAMOL [Suspect]
     Indication: MUSCLE SPASMS
     Dosage: (750 MG, AS REQUIRED), ORAL
     Route: 048
  4. ASPIRIN [Suspect]
     Indication: CHEST PAIN
     Dosage: (81 MG, AS REQUIRED)
  5. FUROSEMIDE [Suspect]
     Indication: DIURETIC THERAPY
     Dosage: 80 MG (40 MG, 2 IN 1 D), ORAL
     Route: 048
  6. ATIVAN [Suspect]
     Indication: ANXIETY
     Dosage: 3 MG (1 MG, 3 IN 1 D), ORAL
     Route: 048
  7. SIMVASTATIN [Suspect]
     Indication: BLOOD CHOLESTEROL INCREASED
     Dosage: (40 MG, 1 D), ORAL
     Route: 048
  8. NITROSTAT [Suspect]
     Indication: PRODUCT USED FOR UNKNOWN INDICATION
     Dosage: (0.4 MG, AS REQUIRED)
  9. ISOSORBIDE MONONITRATE [Suspect]
     Indication: CARDIAC DISORDER
     Dosage: 90 M (30 MG, 3 IN 1 D)
  10. REMERON [Suspect]
     Indication: INSOMNIA
     Dosage: (30 MG, 1 D), ORAL
     Route: 048
  11. HUMULIN R [Suspect]
     Indication: DIABETES MELLITUS
     Dosage: 72 IU (24 IU, 3 IN 1 D)
  12. LANTUS [Suspect]
     Indication: DIABETES MELLITUS
     Dosage: (2 IN 1 D)
  13. TYLENOL W/ CODEINE NO. 3 [Suspect]
     Indication: MIGRAINE
     Dosage: (1 D)
  14. LACTULOSE [Suspect]
     Indication: CROHN'S DISEASE
     Dosage: (30 MG, AS REQUIRED)
  15. NORVASC [Suspect]
     Indication: CARDIAC DISORDER
     Dosage: ORAL
     Route: 048
  16. NORVASC [Suspect]
     Indication: LUNG DISORDER
     Dosage: ORAL
     Route: 048
  17. DEPAKOTE [Suspect]
     Indication: CONVULSION
     Dosage: 1000 MG (500 MG, 2 IN 1 D), ORAL
     Route: 048
  18. LOMOTIL [Suspect]
     Indication: CROHN'S DISEASE
     Dosage: 10 MG (2.5 MG, 4 IN 1 D), ORAL
     Route: 048
  19. DILANTIN [Suspect]
     Indication: PRODUCT USED FOR UNKNOWN INDICATION
     Dosage: 600 MG (300 MG, 2 IN 1 D), ORAL
     Route: 048
  20. POTASSIUM CHLORIDE [Suspect]
     Indication: BLOOD POTASSIUM ABNORMAL
     Dosage: (8 MILLIEQUIVALENTS, 1 D)
  21. ZANTAC [Suspect]
     Indication: GASTROOESOPHAGEAL REFLUX DISEASE
     Dosage: 900 MG (300 MG, 3 IN 1 D)

REACTIONS (7)
  - EMPHYSEMA [None]
  - MUSCLE SPASMS [None]
  - AMNESIA [None]
  - CHRONIC OBSTRUCTIVE PULMONARY DISEASE [None]
  - BLOOD CHOLESTEROL INCREASED [None]
  - BLOOD POTASSIUM ABNORMAL [None]
  - CHEST PAIN [None]
